FAERS Safety Report 7946360-6 (Version None)
Quarter: 2011Q4

REPORT INFORMATION
  Report Type: 
  Country: None (occurrence: None)
  Receive Date: 20111129
  Receipt Date: 20111121
  Transmission Date: 20120403
  Serious: Yes (Hospitalization, Other)
  Sender: FDA-Public Use
  Company Number: US-MERCK-1102USA02843

PATIENT
  Age: 63 Year
  Sex: Female
  Weight: 43 kg

DRUGS (5)
  1. FOSAMAX [Suspect]
     Indication: OSTEOPOROSIS
     Route: 048
     Dates: start: 19970301, end: 19990501
  2. FOSAMAX [Suspect]
     Route: 048
     Dates: start: 20010201, end: 20020401
  3. FOSAMAX [Suspect]
     Route: 048
     Dates: start: 20080814, end: 20081006
  4. FOSAMAX [Suspect]
     Route: 048
     Dates: start: 20020401, end: 20081101
  5. FOSAMAX [Suspect]
     Route: 048
     Dates: start: 19990501, end: 20010201

REACTIONS (9)
  - TOOTH DISORDER [None]
  - BONE MARROW DISORDER [None]
  - NEOPLASM MALIGNANT [None]
  - OSTEONECROSIS OF JAW [None]
  - ENDOMETRIAL DISORDER [None]
  - GINGIVAL SWELLING [None]
  - ADVERSE EVENT [None]
  - BONE LOSS [None]
  - TOOTH INFECTION [None]
